FAERS Safety Report 4356353-6 (Version None)
Quarter: 2004Q2

REPORT INFORMATION
  Report Type: 
  Country: None (occurrence: None)
  Receive Date: 20040511
  Receipt Date: 20040511
  Transmission Date: 20050107
  Serious: Yes (Life-Threatening, Hospitalization)
  Sender: FDA-Public Use
  Company Number: None

PATIENT
  Age: 62 Year
  Sex: Female
  Weight: 56.6996 kg

DRUGS (4)
  1. CAMPATH [Suspect]
     Indication: CHRONIC LYMPHOCYTIC LEUKAEMIA
     Dosage: 30 MG -M-W-F-X INTRAVENOUS
     Route: 042
     Dates: start: 20040301, end: 20040402
  2. SEPTRA [Concomitant]
  3. FAMIR [Concomitant]
  4. NEUPOGEN [Concomitant]

REACTIONS (5)
  - BONE MARROW DEPRESSION [None]
  - COUGH [None]
  - MALAISE [None]
  - PANCYTOPENIA [None]
  - PYREXIA [None]
